FAERS Safety Report 6545845-7 (Version None)
Quarter: 2010Q1

REPORT INFORMATION
  Report Type: 
  Country: None (occurrence: None)
  Receive Date: 20100121
  Receipt Date: 20100121
  Transmission Date: 20100710
  Serious: Yes (Hospitalization)
  Sender: FDA-Public Use
  Company Number: None

PATIENT
  Sex: Female
  Weight: 65 kg

DRUGS (18)
  1. CISPLATIN [Suspect]
     Dosage: 134 MG
  2. ETOPOSIDE [Suspect]
     Dosage: 504 MG
  3. ADVAIR [Concomitant]
  4. AMBIEN [Concomitant]
  5. AMLODIPINE [Concomitant]
  6. ASTELIN [Concomitant]
  7. BENAZEPRIL HYDROCHLORIDE [Concomitant]
  8. CALCIUM [Concomitant]
  9. CELEBREX [Concomitant]
  10. COMBIVENT [Concomitant]
  11. CRESTOR [Concomitant]
  12. DEMECLOCYCLINE HCL [Concomitant]
  13. FENTANYL [Concomitant]
  14. LYRICA [Concomitant]
  15. NEXIUM [Concomitant]
  16. SOMA [Concomitant]
  17. XYLOXYLIN [Concomitant]
  18. ZOFRAN [Concomitant]

REACTIONS (4)
  - FATIGUE [None]
  - HYPONATRAEMIA [None]
  - NAUSEA [None]
  - VOMITING [None]
